FAERS Safety Report 20734323 (Version 3)
Quarter: 2022Q2

REPORT INFORMATION
  Report Type: Spontaneous
  Country: US (occurrence: US)
  Receive Date: 20220421
  Receipt Date: 20220624
  Transmission Date: 20220720
  Serious: No
  Sender: FDA-Public Use
  Company Number: US-GSKCCFUS-Case-01355412_AE-78508

PATIENT
  Age: 73 Year
  Sex: Female

DRUGS (1)
  1. ADVAIR HFA [Suspect]
     Active Substance: FLUTICASONE PROPIONATE\SALMETEROL XINAFOATE
     Indication: Product used for unknown indication
     Dosage: UNK, 230MCG/21MCG 1X120D

REACTIONS (3)
  - Product dose omission issue [Unknown]
  - Drug monitoring procedure not performed [Unknown]
  - Product complaint [Unknown]

NARRATIVE: CASE EVENT DATE: 20220401
